FAERS Safety Report 5896774-3 (Version None)
Quarter: 2008Q3

REPORT INFORMATION
  Report Type: 
  Country: None (occurrence: None)
  Receive Date: 20080924
  Receipt Date: 20071226
  Transmission Date: 20090109
  Serious: Yes (Other)
  Sender: FDA-Public Use
  Company Number: US-ASTRAZENECA-2007UW24989

PATIENT
  Age: 723 Month
  Sex: Female

DRUGS (8)
  1. SEROQUEL [Suspect]
     Indication: SLEEP DISORDER
     Route: 048
     Dates: start: 20020101, end: 20070301
  2. PROZAC [Concomitant]
     Indication: DEPRESSION
     Dates: start: 20020101
  3. TRAZODINE [Concomitant]
     Indication: SLEEP DISORDER
     Dates: start: 20070306
  4. LUNESTA [Concomitant]
     Indication: SLEEP DISORDER
     Dates: start: 20060329
  5. ESTRADIOL [Concomitant]
  6. MEDROXY [Concomitant]
  7. GLUCOPHAGE [Concomitant]
  8. INSULIN [Concomitant]

REACTIONS (1)
  - DIABETES MELLITUS [None]
